FAERS Safety Report 15967844 (Version 2)
Quarter: 2019Q1

REPORT INFORMATION
  Report Type: Report from Study
  Country: AU (occurrence: AU)
  Receive Date: 20190215
  Receipt Date: 20190311
  Transmission Date: 20190418
  Serious: Yes (Death, Hospitalization, Other)
  Sender: FDA-Public Use
  Company Number: AU-B.I. PHARMACEUTICALS,INC./RIDGEFIELD-2018-BI-059162

PATIENT
  Age: 70 Year
  Sex: Female
  Weight: 52 kg

DRUGS (3)
  1. AFATINIB [Suspect]
     Active Substance: AFATINIB
     Indication: NON-SMALL CELL LUNG CANCER
     Route: 048
     Dates: start: 201802
  2. AFATINIB [Suspect]
     Active Substance: AFATINIB
     Route: 048
     Dates: start: 20180202, end: 20180210
  3. AFATINIB [Suspect]
     Active Substance: AFATINIB
     Route: 048
     Dates: start: 20181217, end: 20181231

REACTIONS (5)
  - Lower respiratory tract infection [Fatal]
  - Rash [Recovered/Resolved]
  - Diarrhoea [Recovered/Resolved]
  - Pyrexia [Recovered/Resolved]
  - Malignant neoplasm progression [Unknown]

NARRATIVE: CASE EVENT DATE: 20180210
